FAERS Safety Report 14260074 (Version 1)
Quarter: 2017Q4

REPORT INFORMATION
  Report Type: Spontaneous
  Country: NL (occurrence: NL)
  Receive Date: 20171207
  Receipt Date: 20171207
  Transmission Date: 20180321
  Serious: Yes (Other)
  Sender: FDA-Public Use
  Company Number: NL-GILEAD-2017-0300856

PATIENT
  Age: 69 Year
  Sex: Male
  Weight: 65 kg

DRUGS (7)
  1. TRUVADA [Concomitant]
     Active Substance: EMTRICITABINE\TENOFOVIR DISOPROXIL FUMARATE
  2. TAMSULOSIN [Concomitant]
     Active Substance: TAMSULOSIN
  3. MACROGOL [Concomitant]
     Active Substance: POLYETHYLENE GLYCOLS
  4. LANSOPRAZOLE. [Concomitant]
     Active Substance: LANSOPRAZOLE
  5. DESCOVY [Suspect]
     Active Substance: EMTRICITABINE\TENOFOVIR ALAFENAMIDE FUMARATE
     Indication: HIV INFECTION
     Dosage: 1 DF, ONCE
     Route: 048
     Dates: start: 201707, end: 201707
  6. VIRAMUNE [Concomitant]
     Active Substance: NEVIRAPINE
  7. LAMIVUDINE. [Concomitant]
     Active Substance: LAMIVUDINE

REACTIONS (7)
  - Insomnia [Recovered/Resolved]
  - Paraesthesia [Recovered/Resolved]
  - Malaise [Recovered/Resolved]
  - Fatigue [Unknown]
  - Nausea [Unknown]
  - Agitation [Recovered/Resolved]
  - Loss of consciousness [Recovered/Resolved]

NARRATIVE: CASE EVENT DATE: 201707
